FAERS Safety Report 4810351-4 (Version None)
Quarter: 2005Q4

REPORT INFORMATION
  Report Type: 
  Country: None (occurrence: None)
  Receive Date: 20051024
  Receipt Date: 20051014
  Transmission Date: 20060501
  Serious: Yes (Hospitalization)
  Sender: FDA-Public Use
  Company Number: 2005082280

PATIENT
  Age: 84 Year
  Sex: Female

DRUGS (7)
  1. ATARAX [Suspect]
     Indication: ILL-DEFINED DISORDER
     Dates: start: 20050415
  2. HEPARIN SODIUM [Suspect]
     Indication: ILL-DEFINED DISORDER
     Dates: start: 20050414, end: 20050415
  3. ACEBUTOLOL HCL [Suspect]
     Indication: ILL-DEFINED DISORDER
     Dates: start: 20050414, end: 20050415
  4. CIMETIDINE [Suspect]
     Indication: ILL-DEFINED DISORDER
     Dates: end: 20050415
  5. PRAVASTATIN [Suspect]
     Indication: ILL-DEFINED DISORDER
     Dates: start: 20050415, end: 20050415
  6. CLOPIDOGREL BISULFATE [Suspect]
     Indication: ILL-DEFINED DISORDER
     Dates: start: 20050414, end: 20050415
  7. DEXCHLORPHENIRAMINE MALEATE [Suspect]
     Indication: ILL-DEFINED DISORDER
     Dates: start: 20050415

REACTIONS (7)
  - CITROBACTER INFECTION [None]
  - CULTURE URINE POSITIVE [None]
  - DERMATITIS BULLOUS [None]
  - ESCHERICHIA INFECTION [None]
  - FIXED ERUPTION [None]
  - GENERAL PHYSICAL CONDITION ABNORMAL [None]
  - TOXIC SKIN ERUPTION [None]
